FAERS Safety Report 18265158 (Version 2)
Quarter: 2020Q4

REPORT INFORMATION
  Report Type: Report from Study
  Country: None (occurrence: US)
  Receive Date: 20200915
  Receipt Date: 20201119
  Transmission Date: 20210113
  Serious: Yes (Hospitalization)
  Sender: FDA-Public Use
  Company Number: US-ABBVIE-20K-163-3561156-00

PATIENT
  Sex: Male
  Weight: 56.3 kg

DRUGS (1)
  1. HUMIRA [Suspect]
     Active Substance: ADALIMUMAB
     Indication: CROHN^S DISEASE
     Dosage: CITRATE FREE
     Route: 058
     Dates: start: 201910, end: 202007

REACTIONS (2)
  - Intestinal stenosis [Unknown]
  - Procedural complication [Unknown]

NARRATIVE: CASE EVENT DATE: 2019
